FAERS Safety Report 8625786 (Version 2)
Quarter: 2013Q3

REPORT INFORMATION
  Report Type: Spontaneous
  Country: US (occurrence: US)
  Receive Date: 20120620
  Receipt Date: 20130716
  Transmission Date: 20140515
  Serious: No
  Sender: FDA-Public Use
  Company Number: US-UCBSA-059600

PATIENT
  Age: 64 Year
  Sex: Female

DRUGS (1)
  1. CIMZIA [Suspect]
     Indication: RHEUMATOID ARTHRITIS
     Dates: start: 20120329

REACTIONS (2)
  - Bronchitis [Not Recovered/Not Resolved]
  - Drug ineffective [Recovered/Resolved]
